FAERS Safety Report 5443577-X (Version None)
Quarter: 2007Q3

REPORT INFORMATION
  Report Type: 
  Country: None (occurrence: None)
  Receive Date: 20070905
  Receipt Date: 20070904
  Transmission Date: 20080115
  Serious: Yes (Hospitalization)
  Sender: FDA-Public Use
  Company Number: US-BRISTOL-MYERS SQUIBB COMPANY-13897624

PATIENT
  Age: 52 Year
  Sex: Female

DRUGS (1)
  1. TEQUIN [Suspect]
     Dates: start: 20040319, end: 20040330

REACTIONS (7)
  - BRONCHITIS [None]
  - CHEST PAIN [None]
  - CHRONIC OBSTRUCTIVE PULMONARY DISEASE [None]
  - DIABETES MELLITUS [None]
  - DIZZINESS [None]
  - DYSPNOEA [None]
  - HYPERGLYCAEMIA [None]
